FAERS Safety Report 8849403 (Version 1)
Quarter: 2012Q4

REPORT INFORMATION
  Report Type: Report from Study
  Country: DE (occurrence: DE)
  Receive Date: 20121017
  Receipt Date: 20121017
  Transmission Date: 20130627
  Serious: Yes (Hospitalization)
  Sender: FDA-Public Use
  Company Number: DE-ASTRAZENECA-2011SE05693

PATIENT
  Age: 67 Year
  Sex: Female
  Weight: 60 kg

DRUGS (9)
  1. FASLODEX [Suspect]
     Indication: BREAST CANCER
     Route: 030
     Dates: start: 20101104, end: 20110228
  2. ACC [Concomitant]
     Indication: COUGH
     Route: 048
  3. NOVALGIN [Concomitant]
     Indication: PAIN
     Dosage: 20 Four times a day
     Route: 048
     Dates: start: 20110323
  4. FENTANYL [Concomitant]
     Indication: PAIN
     Route: 050
  5. METOCLOPRAMID [Concomitant]
     Indication: NAUSEA
     Dosage: 20 Three times a day
     Route: 048
     Dates: start: 20110323
  6. SAROTEN [Concomitant]
     Indication: PAIN
     Route: 048
     Dates: start: 20110131
  7. TOREM [Concomitant]
     Indication: DEHYDRATION
     Route: 048
     Dates: start: 20110323
  8. DEXAMETASON [Concomitant]
     Indication: PALLIATIVE CARE
     Route: 048
     Dates: start: 20110323
  9. DEXAMETASON [Concomitant]
     Indication: DYSPNOEA
     Route: 048
     Dates: start: 20110323

REACTIONS (6)
  - Post procedural fistula [Not Recovered/Not Resolved]
  - Musculoskeletal pain [Not Recovered/Not Resolved]
  - Malignant pleural effusion [Not Recovered/Not Resolved]
  - Procedural pain [Not Recovered/Not Resolved]
  - Back pain [Not Recovered/Not Resolved]
  - Pain [Not Recovered/Not Resolved]
